FAERS Safety Report 8815268 (Version 1)
Quarter: 2012Q4

REPORT INFORMATION
  Report Type: 
  Country: US (occurrence: US)
  Receive Date: 20120928
  Receipt Date: 20120928
  Transmission Date: 20130627
  Serious: No
  Sender: FDA-Public Use
  Company Number: US-VERTEX PHARMACEUTICAL INC.-2012-020476

PATIENT
  Sex: Male

DRUGS (3)
  1. VX-950 [Suspect]
     Indication: HEPATITIS C
     Dosage: 750 mg, tid
     Route: 048
  2. PEGASYS [Concomitant]
     Dosage: 180 ug/kg/week
     Route: 058
  3. RIBASPHERE [Concomitant]
     Dosage: 400 mg qam, 600 mg qpm
     Route: 048

REACTIONS (6)
  - Flushing [Unknown]
  - Headache [Unknown]
  - Muscle spasms [Unknown]
  - Epistaxis [Unknown]
  - Fatigue [Unknown]
  - Rash [Unknown]
